FAERS Safety Report 21972928 (Version 1)
Quarter: 2023Q1

REPORT INFORMATION
  Report Type: Spontaneous
  Country: US (occurrence: US)
  Receive Date: 20230209
  Receipt Date: 20230209
  Transmission Date: 20230418
  Serious: Yes (Life-Threatening, Other)
  Sender: FDA-Public Use
  Company Number: US-MYLANLABS-2023M1013853

PATIENT
  Age: 6 Year
  Sex: Male

DRUGS (4)
  1. IBUPROFEN [Suspect]
     Active Substance: IBUPROFEN
     Indication: Pyrexia
     Dosage: UNK
     Route: 048
  2. IBUPROFEN [Suspect]
     Active Substance: IBUPROFEN
     Dosage: 240 MILLIGRAM, ORAL GRADED IBUPROFEN CHALLENGE
     Route: 048
  3. DIPHENHYDRAMINE [Suspect]
     Active Substance: DIPHENHYDRAMINE
     Indication: Anaphylactic reaction
     Dosage: UNK
     Route: 065
  4. ASPIRIN [Suspect]
     Active Substance: ASPIRIN
     Indication: Pyrexia
     Dosage: UNK, AN ORAL GRADED ASPIRIN CHALLENGE WITH A CUMULATIVE DOSE OF 324MG
     Route: 048

REACTIONS (2)
  - Anaphylactic reaction [Unknown]
  - Drug ineffective [Unknown]
